FAERS Safety Report 21263369 (Version 2)
Quarter: 2022Q4

REPORT INFORMATION
  Report Type: Report from Study
  Country: US (occurrence: US)
  Receive Date: 20220829
  Receipt Date: 20221124
  Transmission Date: 20230112
  Serious: No
  Sender: FDA-Public Use
  Company Number: US-ACADIA PHARMACEUTICALS INC.-ACA-2022-PIM-002628

PATIENT
  Age: 74 Year
  Sex: Female

DRUGS (20)
  1. NUPLAZID [Suspect]
     Active Substance: PIMAVANSERIN TARTRATE
     Indication: Parkinson^s disease psychosis
     Dosage: 34 MILLIGRAM, QD
     Route: 048
     Dates: start: 20220614, end: 20221031
  2. ACETAMINOPHEN [Concomitant]
     Active Substance: ACETAMINOPHEN
  3. BUSPIRONE [Concomitant]
     Active Substance: BUSPIRONE HYDROCHLORIDE
  4. CALCIUM CARBONATE [Concomitant]
     Active Substance: CALCIUM CARBONATE
  5. CELECOXIB [Concomitant]
     Active Substance: CELECOXIB
  6. CLOZAPINE [Concomitant]
     Active Substance: CLOZAPINE
  7. CYANOCOBALAMIN [Concomitant]
     Active Substance: CYANOCOBALAMIN
  8. DICLOFENAC [Concomitant]
     Active Substance: DICLOFENAC
     Route: 061
  9. DIPHENHYDRAMINE [Concomitant]
     Active Substance: DIPHENHYDRAMINE
  10. KETOCONAZOLE [Concomitant]
     Active Substance: KETOCONAZOLE
     Route: 061
  11. LORAZEPAM [Concomitant]
     Active Substance: LORAZEPAM
  12. MAGNESIUM [Concomitant]
     Active Substance: MAGNESIUM
  13. MIRTAZAPINE [Concomitant]
     Active Substance: MIRTAZAPINE
  14. TRAMADOL [Concomitant]
     Active Substance: TRAMADOL
  15. TRIAMCINOLONE [Concomitant]
     Active Substance: TRIAMCINOLONE
     Route: 061
  16. ALBUTEROL SULFATE [Concomitant]
     Active Substance: ALBUTEROL SULFATE
  17. CARBIDOPA\LEVODOPA [Concomitant]
     Active Substance: CARBIDOPA\LEVODOPA
  18. SINEMET [Concomitant]
     Active Substance: CARBIDOPA\LEVODOPA
  19. ESCITALOPRAM [Concomitant]
     Active Substance: ESCITALOPRAM OXALATE
  20. QUETIAPINE [Concomitant]
     Active Substance: QUETIAPINE
     Dosage: UNK
     Dates: end: 202206

REACTIONS (5)
  - Orthostatic hypotension [Recovered/Resolved]
  - Drug ineffective [Unknown]
  - Hallucination [Unknown]
  - Therapeutic response shortened [Unknown]
  - Therapeutic response decreased [Not Recovered/Not Resolved]

NARRATIVE: CASE EVENT DATE: 20220803
